FAERS Safety Report 6294774-5 (Version None)
Quarter: 2009Q3

REPORT INFORMATION
  Report Type: 
  Country: None (occurrence: None)
  Receive Date: 20090803
  Receipt Date: 20090609
  Transmission Date: 20100115
  Serious: Yes (Life-Threatening, Other)
  Sender: FDA-Public Use
  Company Number: US-PURDUE-USA-2009-0038812

PATIENT
  Sex: Male
  Weight: 108.84 kg

DRUGS (15)
  1. OXYCONTIN [Suspect]
     Indication: PAIN
     Dosage: UNK
     Dates: start: 19990303
  2. OXYCODONE [Concomitant]
     Indication: PAIN
     Dosage: 30 MG, Q4H
  3. PLAVIX [Concomitant]
     Indication: PAIN
     Dosage: 75 MG, UNK
  4. IMDUR [Concomitant]
     Dosage: 30 MG, DAILY
  5. TOPROL-XL [Concomitant]
     Dosage: 100 MG, DAILY
  6. NEURONTIN [Concomitant]
     Dosage: 300 UNK, UNK
  7. CLONAZEPAM [Concomitant]
     Dosage: 2 MG, UNK
  8. FLEXERIL [Concomitant]
     Dosage: 10 MG, UNK
  9. ZOCOR [Concomitant]
     Dosage: 40 MG, DAILY
  10. ALTACE [Concomitant]
     Dosage: 5 MG, DAILY
  11. BUMEX [Concomitant]
     Dosage: 2 MG, BID
  12. TESTIM [Concomitant]
     Dosage: 1 %, DAILY
  13. LIDODERM [Concomitant]
     Dosage: 5 %, BID
  14. FLECTOR                            /00372302/ [Concomitant]
     Dosage: 1.3 %, UNK
  15. INSULIN [Concomitant]
     Dosage: UNK

REACTIONS (9)
  - ABDOMINAL DISCOMFORT [None]
  - COMA [None]
  - CONSTIPATION [None]
  - EPILEPSY [None]
  - HEADACHE [None]
  - MUSCLE SPASMS [None]
  - NAUSEA [None]
  - REFLUX OESOPHAGITIS [None]
  - SUICIDE ATTEMPT [None]
